FAERS Safety Report 7612266-5 (Version None)
Quarter: 2011Q3

REPORT INFORMATION
  Report Type: 
  Country: None (occurrence: None)
  Receive Date: 20110715
  Receipt Date: 20110712
  Transmission Date: 20111222
  Serious: Yes (Congenital Anomaly)
  Sender: FDA-Public Use
  Company Number: FR-GILEAD-2011-0041616

PATIENT
  Sex: Male
  Weight: 3.7 kg

DRUGS (2)
  1. PROPRANOLOL [Suspect]
     Indication: PORTAL HYPERTENSION
     Route: 064
     Dates: start: 20100401
  2. VIREAD [Suspect]
     Indication: HEPATITIS B
     Route: 064
     Dates: start: 20100901

REACTIONS (1)
  - NEONATAL RESPIRATORY DISTRESS SYNDROME [None]
